FAERS Safety Report 6897924-2 (Version None)
Quarter: 2010Q3

REPORT INFORMATION
  Report Type: 
  Country: None (occurrence: None)
  Receive Date: 20100802
  Receipt Date: 20070813
  Transmission Date: 20110219
  Serious: Yes (Other)
  Sender: FDA-Public Use
  Company Number: US-PFIZER INC-2007047624

PATIENT
  Sex: Female

DRUGS (6)
  1. LYRICA [Suspect]
     Indication: HERPES ZOSTER
     Dates: start: 20070101, end: 20070101
  2. LIPITOR [Suspect]
     Indication: BLOOD CHOLESTEROL INCREASED
     Dosage: ^10 NG^
     Dates: start: 20070101
  3. ALL OTHER THERAPEUTIC PRODUCTS [Suspect]
  4. SIMVASTATIN [Suspect]
     Indication: BLOOD CHOLESTEROL INCREASED
     Dates: start: 20070101
  5. BAYCOL [Suspect]
     Indication: BLOOD CHOLESTEROL INCREASED
  6. ACYCLOVIR [Concomitant]

REACTIONS (12)
  - BACK DISORDER [None]
  - DRY MOUTH [None]
  - HEADACHE [None]
  - MEDICATION ERROR [None]
  - MUSCLE SPASMS [None]
  - MUSCULAR WEAKNESS [None]
  - MYALGIA [None]
  - OEDEMA PERIPHERAL [None]
  - PARAESTHESIA [None]
  - PYREXIA [None]
  - VISION BLURRED [None]
  - WEIGHT INCREASED [None]
